FAERS Safety Report 20416898 (Version 1)
Quarter: 2022Q1

REPORT INFORMATION
  Report Type: Spontaneous
  Country: SE (occurrence: SE)
  Receive Date: 20220202
  Receipt Date: 20220202
  Transmission Date: 20220423
  Serious: Yes (Other)
  Sender: FDA-Public Use
  Company Number: SE-MYLANLABS-2022M1006189

PATIENT
  Age: 30 Year
  Sex: Male

DRUGS (1)
  1. PROMETHAZINE HYDROCHLORIDE\THIOUREA [Suspect]
     Active Substance: PROMETHAZINE HYDROCHLORIDE\THIOUREA
     Indication: Sleep disorder
     Dosage: UNK
     Dates: end: 20211117

REACTIONS (5)
  - Seizure [Unknown]
  - Syncope [Unknown]
  - Palpitations [Unknown]
  - Heart rate abnormal [Unknown]
  - Confusional state [Unknown]

NARRATIVE: CASE EVENT DATE: 20211118
